FAERS Safety Report 24912402 (Version 1)
Quarter: 2025Q1

REPORT INFORMATION
  Report Type: Report from Study
  Country: GB (occurrence: GB)
  Receive Date: 20250131
  Receipt Date: 20250131
  Transmission Date: 20250409
  Serious: Yes (Hospitalization, Other)
  Sender: IPSEN BIOPHARMACEUTICALS, INC.
  Company Number: GB-IPSEN Group, Research and Development-2024-26882

PATIENT
  Age: 76 Year
  Sex: Female

DRUGS (1)
  1. LANREOTIDE ACETATE [Suspect]
     Active Substance: LANREOTIDE ACETATE
     Indication: Product used for unknown indication
     Route: 065
     Dates: start: 20240905

REACTIONS (2)
  - Pneumonia [Recovering/Resolving]
  - Lower respiratory tract infection [Unknown]

NARRATIVE: CASE EVENT DATE: 20241216
